FAERS Safety Report 24910699 (Version 6)
Quarter: 2025Q2

REPORT INFORMATION
  Report Type: Spontaneous
  Country: GB (occurrence: GB)
  Receive Date: 20250131
  Receipt Date: 20250611
  Transmission Date: 20250716
  Serious: Yes (Other)
  Sender: PFIZER
  Company Number: GB-002147023-NVSC2025GB010560

PATIENT
  Sex: Female

DRUGS (10)
  1. METHOTREXATE SODIUM [Suspect]
     Active Substance: METHOTREXATE SODIUM
  2. RITUXIMAB [Suspect]
     Active Substance: RITUXIMAB
     Route: 042
  3. TOFACITINIB CITRATE [Suspect]
     Active Substance: TOFACITINIB CITRATE
     Route: 065
  4. XOLAIR [Suspect]
     Active Substance: OMALIZUMAB
     Indication: Chronic spontaneous urticaria
     Route: 065
  5. XOLAIR [Suspect]
     Active Substance: OMALIZUMAB
     Indication: Angioedema
  6. CYCLOSPORINE [Suspect]
     Active Substance: CYCLOSPORINE
  7. PREDNISOLONE [Suspect]
     Active Substance: PREDNISOLONE
  8. ANAKINRA [Suspect]
     Active Substance: ANAKINRA
  9. REMIBRUTINIB [Suspect]
     Active Substance: REMIBRUTINIB
     Indication: Angioedema
     Dosage: 300 MG, QMO
     Route: 065
  10. REMIBRUTINIB [Suspect]
     Active Substance: REMIBRUTINIB
     Indication: Chronic spontaneous urticaria

REACTIONS (6)
  - Angioedema [Unknown]
  - Treatment failure [Unknown]
  - Chronic spontaneous urticaria [Unknown]
  - Condition aggravated [Unknown]
  - Mental disorder due to a general medical condition [Unknown]
  - Drug intolerance [Unknown]
